FAERS Safety Report 12356122 (Version 1)
Quarter: 2016Q2

REPORT INFORMATION
  Report Type: Report from Study
  Country: GR (occurrence: GR)
  Receive Date: 20160511
  Receipt Date: 20160511
  Transmission Date: 20160815
  Serious: Yes (Death)
  Sender: FDA-Public Use
  Company Number: GR-ABBVIE-16P-066-1623645-00

PATIENT
  Age: 68 Year
  Sex: Male

DRUGS (3)
  1. LOPRESSOR [Concomitant]
     Active Substance: METOPROLOL TARTRATE
     Indication: HYPERTENSION
     Route: 048
     Dates: end: 20160430
  2. COPALIA [Concomitant]
     Active Substance: AMLODIPINE BESYLATE\VALSARTAN
     Indication: HYPERTENSION
     Dosage: (5+160)MG
     Route: 048
     Dates: end: 20160430
  3. DUODOPA [Suspect]
     Active Substance: CARBIDOPA\LEVODOPA
     Indication: PARKINSON^S DISEASE
     Dosage: MORNING DOSE: 12 ML, CONTINUOUS RATE: 2.6 ML/H, EXTRA DOSE: 1.4 ML
     Route: 050
     Dates: start: 20151021

REACTIONS (5)
  - Aneurysm [Fatal]
  - Blood pressure increased [Recovered/Resolved]
  - Blood pressure decreased [Unknown]
  - Death [Fatal]
  - Cerebrovascular accident [Fatal]

NARRATIVE: CASE EVENT DATE: 20160430
